FAERS Safety Report 9422973 (Version 2)
Quarter: 2013Q3

REPORT INFORMATION
  Report Type: Report from Study
  Country: CA (occurrence: CA)
  Receive Date: 20130726
  Receipt Date: 20130808
  Transmission Date: 20140515
  Serious: Yes (Death)
  Sender: FDA-Public Use
  Company Number: CA-ASTRAZENECA-2013SE55993

PATIENT
  Sex: Female

DRUGS (12)
  1. FASLODEX [Suspect]
     Indication: BREAST CANCER METASTATIC
     Route: 030
     Dates: start: 20130719
  2. TAMOXIFEN [Suspect]
     Indication: BREAST CANCER
     Route: 048
  3. LETROZOLE [Suspect]
     Indication: BREAST CANCER
     Route: 065
  4. DILAUDID [Concomitant]
     Dosage: 3 MG SR+ 1 MG BREAK THROUGH
  5. ZOPLICONE [Concomitant]
  6. AMLODIPINE [Concomitant]
  7. METOPROLOL [Concomitant]
  8. RANITIDINE [Concomitant]
  9. SIMVASTATIN [Concomitant]
  10. LASIX [Concomitant]
     Route: 048
  11. GABAPENTIN [Concomitant]
  12. ETIDRONATE [Concomitant]

REACTIONS (1)
  - Malignant neoplasm progression [Fatal]
